FAERS Safety Report 6974578-8 (Version None)
Quarter: 2010Q3

REPORT INFORMATION
  Report Type: 
  Country: None (occurrence: None)
  Receive Date: 20100909
  Receipt Date: 20081208
  Transmission Date: 20110219
  Serious: No
  Sender: FDA-Public Use
  Company Number: US-WYE-H06339108

PATIENT
  Age: 82 Year
  Sex: Female
  Weight: 50.85 kg

DRUGS (9)
  1. PRISTIQ [Suspect]
     Indication: MAJOR DEPRESSION
     Dosage: 50 MG EVERY 1 TOT
     Route: 048
     Dates: start: 20080910, end: 20080910
  2. CENTRUM [Concomitant]
  3. FISH OIL, HYDROGENATED [Concomitant]
  4. XANAX [Concomitant]
  5. COENZYME Q10 [Concomitant]
  6. ACETYLSALICYLIC ACID [Concomitant]
  7. PREVACID [Concomitant]
  8. METOPROLOL TARTRATE [Concomitant]
  9. LUTEIN [Concomitant]

REACTIONS (2)
  - PALPITATIONS [None]
  - TREMOR [None]
